FAERS Safety Report 7577008-0 (Version None)
Quarter: 2011Q2

REPORT INFORMATION
  Report Type: 
  Country: None (occurrence: None)
  Receive Date: 20110628
  Receipt Date: 20110106
  Transmission Date: 20111010
  Serious: Yes (Other)
  Sender: FDA-Public Use
  Company Number: US-BAYER-201035813NA

PATIENT
  Age: 24 Year
  Sex: Female
  Weight: 55.329 kg

DRUGS (4)
  1. YASMIN [Suspect]
     Indication: CONTRACEPTION
     Route: 048
     Dates: start: 20030701, end: 20100301
  2. DROSPIRENONE AND ETHINYL ESTRADIOL [Suspect]
     Indication: CONTRACEPTION
     Route: 048
     Dates: start: 20030701, end: 20100301
  3. YAZ [Suspect]
     Indication: CONTRACEPTION
     Route: 048
     Dates: start: 20030701, end: 20100301
  4. ACCUTANE [Concomitant]

REACTIONS (3)
  - GALLBLADDER DISORDER [None]
  - BILIARY COLIC [None]
  - CHOLELITHIASIS [None]
